FAERS Safety Report 8366856-5 (Version None)
Quarter: 2012Q2

REPORT INFORMATION
  Report Type: 
  Country: None (occurrence: None)
  Receive Date: 20120517
  Receipt Date: 20120502
  Transmission Date: 20120825
  Serious: Yes (Death, Hospitalization, Other)
  Sender: FDA-Public Use
  Company Number: US-MYLANLABS-2009AC000263

PATIENT
  Sex: Female
  Weight: 46.27 kg

DRUGS (70)
  1. DIGOXIN [Suspect]
     Route: 048
     Dates: start: 20031110, end: 20070103
  2. LESCOL [Concomitant]
  3. ADVAIR DISKUS 100/50 [Concomitant]
  4. MIRTAZAPINE [Concomitant]
  5. RESTORIL [Concomitant]
  6. CIPROFLOXACIN [Concomitant]
  7. FERROUS SULFATE TAB [Concomitant]
  8. FLOVENT [Concomitant]
  9. RITUXAN [Concomitant]
  10. PRAVACHOL [Concomitant]
  11. CARDIZEM [Concomitant]
     Route: 042
  12. TOBRAMYCIN [Concomitant]
  13. EFFEXOR [Concomitant]
  14. PACERONE [Concomitant]
  15. ATROVENT [Concomitant]
  16. LEVAQUIN [Concomitant]
  17. HALOPERIDOL [Concomitant]
  18. POTASSIUM CHLORIDE [Concomitant]
  19. PREDNISONE [Concomitant]
  20. EPOGEN [Concomitant]
  21. HYOSCYAMINE [Concomitant]
  22. DIFLUCAN [Concomitant]
  23. PREMARIN [Concomitant]
  24. XANAX [Concomitant]
  25. BETADINE /00080001/ [Concomitant]
  26. HYDROCODONE BITARTRATE [Concomitant]
  27. PROCHLORPERAZINE [Concomitant]
  28. FERREX [Concomitant]
  29. TYLENOL (CAPLET) [Concomitant]
  30. ONCOVIN [Concomitant]
  31. SINGULAIR [Concomitant]
  32. ANTIBIOTICS [Concomitant]
  33. NIFEREX /00023531/ [Concomitant]
  34. ACCUPRIL [Concomitant]
  35. VANCOMYCIN [Concomitant]
  36. IRON [Concomitant]
  37. BACTROBAN [Concomitant]
  38. PROTONIX [Concomitant]
  39. SEPTRA DS [Concomitant]
  40. NEULASTA [Concomitant]
  41. DUONEB [Concomitant]
  42. AUGMENTIN [Concomitant]
  43. REMERON [Concomitant]
  44. COUMADIN [Concomitant]
  45. VICODIN [Concomitant]
  46. ROCEPHIN [Concomitant]
     Route: 042
  47. ACYCLOVIR [Concomitant]
  48. CYCLOPHOSPHAMIDE [Concomitant]
  49. PANTOPRAZOLE [Concomitant]
  50. TEQUIN [Concomitant]
  51. CODICLEAR [Concomitant]
  52. NAPROSYN [Concomitant]
  53. ADVAIR DISKUS 100/50 [Concomitant]
     Route: 055
  54. MULTI-VITAMIN [Concomitant]
  55. CALCIUM CARBONATE [Concomitant]
  56. TEMAZEPAM [Concomitant]
  57. AZITHROMYCIN [Concomitant]
  58. PROZAC [Concomitant]
  59. COMBIVENT [Concomitant]
  60. METRONIDAZOLE [Concomitant]
  61. LEVOTHYROXINE SODIUM [Concomitant]
  62. XYLOCAINE [Concomitant]
  63. AMIODARONE HCL [Concomitant]
     Route: 042
  64. QUINAPRIL [Concomitant]
  65. LEVSIN PB [Concomitant]
  66. FUROSEMIDE [Concomitant]
  67. COMPAZINE [Concomitant]
  68. LIDOCAINE [Concomitant]
  69. ZITHROMAX [Concomitant]
  70. PLAVIX [Concomitant]

REACTIONS (159)
  - PAIN [None]
  - ILL-DEFINED DISORDER [None]
  - ECONOMIC PROBLEM [None]
  - DYSPNOEA [None]
  - ATRIAL FLUTTER [None]
  - JOINT SWELLING [None]
  - CAROTID ARTERY STENOSIS [None]
  - WHEEZING [None]
  - RESPIRATORY DISTRESS [None]
  - PROTHROMBIN TIME RATIO INCREASED [None]
  - INTERNATIONAL NORMALISED RATIO INCREASED [None]
  - BLOOD UREA INCREASED [None]
  - HYPOTENSION [None]
  - DISEASE PROGRESSION [None]
  - CONGESTIVE CARDIOMYOPATHY [None]
  - DYSLIPIDAEMIA [None]
  - SPEECH DISORDER [None]
  - CARDIAC FLUTTER [None]
  - PAIN IN EXTREMITY [None]
  - CAROTID ARTERY DISEASE [None]
  - LUNG DISORDER [None]
  - MYALGIA [None]
  - PALLOR [None]
  - LEFT VENTRICULAR HYPERTROPHY [None]
  - TRICUSPID VALVE INCOMPETENCE [None]
  - LUNG HYPERINFLATION [None]
  - SCAR [None]
  - ARTHRITIS [None]
  - ECCHYMOSIS [None]
  - CHEST X-RAY ABNORMAL [None]
  - INJURY [None]
  - CAROTID BRUIT [None]
  - CHEST DISCOMFORT [None]
  - NODAL RHYTHM [None]
  - CARDIAC PACEMAKER INSERTION [None]
  - RESPIRATORY DISORDER [None]
  - MITRAL VALVE INCOMPETENCE [None]
  - CEREBRAL ATROPHY [None]
  - PULMONARY FIBROSIS [None]
  - GENERAL PHYSICAL CONDITION ABNORMAL [None]
  - DRUG INEFFECTIVE [None]
  - CONDITION AGGRAVATED [None]
  - LEFT ATRIAL DILATATION [None]
  - SENSORY LOSS [None]
  - AREFLEXIA [None]
  - LACERATION [None]
  - CONTUSION [None]
  - HYPOACUSIS [None]
  - CARDIAC SEPTAL DEFECT [None]
  - DEHYDRATION [None]
  - BRADYCARDIA [None]
  - CHRONIC OBSTRUCTIVE PULMONARY DISEASE [None]
  - UPPER RESPIRATORY TRACT INFECTION [None]
  - RETROPERITONEAL LYMPHADENOPATHY [None]
  - B-CELL LYMPHOMA [None]
  - ANXIETY [None]
  - ATELECTASIS [None]
  - PERICARDIAL EFFUSION [None]
  - POLYARTHRITIS [None]
  - MUSCULOSKELETAL PAIN [None]
  - TACHYARRHYTHMIA [None]
  - LEFT VENTRICULAR DYSFUNCTION [None]
  - CACHEXIA [None]
  - GAIT DISTURBANCE [None]
  - POSITIVE ROMBERGISM [None]
  - RESPIRATORY RATE INCREASED [None]
  - ANHEDONIA [None]
  - RENAL FAILURE [None]
  - ASTHENIA [None]
  - OEDEMA PERIPHERAL [None]
  - FOLLICLE CENTRE LYMPHOMA DIFFUSE SMALL CELL LYMPHOMA [None]
  - LUNG NEOPLASM [None]
  - DIZZINESS [None]
  - ARTHRALGIA [None]
  - NAUSEA [None]
  - HYPOPHAGIA [None]
  - PSEUDOMONAS BRONCHITIS [None]
  - PYREXIA [None]
  - DISEASE RECURRENCE [None]
  - HALLUCINATION [None]
  - HYPERLIPIDAEMIA [None]
  - BRONCHITIS CHRONIC [None]
  - SINUSITIS [None]
  - RALES [None]
  - LUNG INFILTRATION [None]
  - HEART SOUNDS ABNORMAL [None]
  - FEELING ABNORMAL [None]
  - BUNDLE BRANCH BLOCK RIGHT [None]
  - LOSS OF EMPLOYMENT [None]
  - BLOOD PRESSURE INCREASED [None]
  - SPUTUM PURULENT [None]
  - DELIRIUM [None]
  - ENCEPHALOPATHY [None]
  - CEREBROVASCULAR DISORDER [None]
  - MENTAL STATUS CHANGES [None]
  - COGNITIVE DISORDER [None]
  - LISTLESS [None]
  - SPUTUM DISCOLOURED [None]
  - DIZZINESS POSTURAL [None]
  - TREATMENT FAILURE [None]
  - RIGHT ATRIAL DILATATION [None]
  - AORTIC VALVE SCLEROSIS [None]
  - ELECTROENCEPHALOGRAM ABNORMAL [None]
  - EMPHYSEMA [None]
  - DECREASED APPETITE [None]
  - TOXICITY TO VARIOUS AGENTS [None]
  - PNEUMONIA [None]
  - PNEUMOTHORAX [None]
  - SEPSIS [None]
  - RENAL FAILURE ACUTE [None]
  - PRODUCTIVE COUGH [None]
  - FATIGUE [None]
  - HYPOXIA [None]
  - PLEURAL EFFUSION [None]
  - HODGKIN'S DISEASE STAGE IV [None]
  - PERIPHERAL VASCULAR DISORDER [None]
  - DRY MOUTH [None]
  - ANAEMIA [None]
  - FALL [None]
  - PULMONARY CONGESTION [None]
  - SPUTUM CULTURE POSITIVE [None]
  - OSTEOARTHRITIS [None]
  - NODAL ARRHYTHMIA [None]
  - SOCIAL AVOIDANT BEHAVIOUR [None]
  - NASOPHARYNGITIS [None]
  - COUGH [None]
  - PANCYTOPENIA [None]
  - WEIGHT DECREASED [None]
  - ATRIAL FIBRILLATION [None]
  - AMNESIA [None]
  - HYPERCAPNIA [None]
  - CARDIOVERSION [None]
  - HYPERTENSION [None]
  - IRRITABLE BOWEL SYNDROME [None]
  - PULMONARY PHYSICAL EXAMINATION ABNORMAL [None]
  - BREATH SOUNDS ABNORMAL [None]
  - MUCOUS MEMBRANE DISORDER [None]
  - MEDIASTINAL SHIFT [None]
  - PROLONGED EXPIRATION [None]
  - EXTRASYSTOLES [None]
  - PULMONARY VALVE INCOMPETENCE [None]
  - EMOTIONAL DISTRESS [None]
  - MALAISE [None]
  - LYMPHOCYTIC INFILTRATION [None]
  - CONFUSIONAL STATE [None]
  - ARRHYTHMIA SUPRAVENTRICULAR [None]
  - VENTRICULAR HYPOKINESIA [None]
  - LYMPHOMA [None]
  - CHEST PAIN [None]
  - SOMNOLENCE [None]
  - HUMERUS FRACTURE [None]
  - INCISION SITE COMPLICATION [None]
  - BRONCHIECTASIS [None]
  - SINUS TACHYCARDIA [None]
  - RHONCHI [None]
  - DILATATION VENTRICULAR [None]
  - ACUTE SINUSITIS [None]
  - CHRONIC RESPIRATORY DISEASE [None]
  - COMMINUTED FRACTURE [None]
